FAERS Safety Report 21845305 (Version 2)
Quarter: 2023Q2

REPORT INFORMATION
  Report Type: Report from Study
  Country: US (occurrence: US)
  Receive Date: 20230110
  Receipt Date: 20230412
  Transmission Date: 20230721
  Serious: No
  Sender: FDA-Public Use
  Company Number: US-ABBVIE-4230052

PATIENT
  Sex: Female

DRUGS (1)
  1. SKYRIZI [Suspect]
     Active Substance: RISANKIZUMAB-RZAA
     Indication: Psoriasis
     Route: 058

REACTIONS (6)
  - Skin disorder [Recovering/Resolving]
  - Therapeutic product effect decreased [Unknown]
  - Atypical pneumonia [Recovering/Resolving]
  - Bronchitis [Recovering/Resolving]
  - Arthritis [Unknown]
  - Hepatic enzyme increased [Unknown]
